FAERS Safety Report 17250393 (Version 1)
Quarter: 2020Q1

REPORT INFORMATION
  Report Type: Spontaneous
  Country: FR (occurrence: FR)
  Receive Date: 20200109
  Receipt Date: 20200109
  Transmission Date: 20200409
  Serious: Yes (Hospitalization)
  Sender: FDA-Public Use
  Company Number: FR-TEVA-2020-FR-1164461

PATIENT
  Age: 69 Year
  Sex: Male

DRUGS (2)
  1. ALLOPURINOL. [Suspect]
     Active Substance: ALLOPURINOL
     Indication: ARTHRITIS
     Dosage: 200 MG
     Route: 048
     Dates: start: 201909, end: 20191126
  2. COLCHIMAX, COMPRIM? PELLICUL? [Suspect]
     Active Substance: COLCHICINE\OPIUM\TIEMONIUM METHYLSULFATE
     Indication: ARTHRITIS
     Dosage: UNSPECIFIED
     Route: 048

REACTIONS (1)
  - Pancreatitis acute [Recovered/Resolved]

NARRATIVE: CASE EVENT DATE: 20191125
